FAERS Safety Report 7463754-6 (Version None)
Quarter: 2011Q2

REPORT INFORMATION
  Report Type: 
  Country: None (occurrence: None)
  Receive Date: 20110506
  Receipt Date: 20110425
  Transmission Date: 20111010
  Serious: Yes (Other)
  Sender: FDA-Public Use
  Company Number: SE-WATSON-2011-06072

PATIENT
  Age: 65 Year
  Sex: Male

DRUGS (3)
  1. FUROSEMIDE [Suspect]
     Indication: MYOCARDIAL INFARCTION
     Dosage: 320 MG, THEN INCREASED TO 150 MG
  2. NATURETIN-5 [Suspect]
     Indication: MYOCARDIAL INFARCTION
  3. SPIRONOLACTONE [Suspect]
     Indication: MYOCARDIAL INFARCTION

REACTIONS (1)
  - RENAL FAILURE ACUTE [None]
